FAERS Safety Report 13985797 (Version 3)
Quarter: 2017Q3

REPORT INFORMATION
  Report Type: Spontaneous
  Country: US (occurrence: US)
  Receive Date: 20170919
  Receipt Date: 20170927
  Transmission Date: 20171128
  Serious: Yes (Life-Threatening, Other)
  Sender: FDA-Public Use
  Company Number: US-PFIZER INC-2017399627

PATIENT
  Age: 64 Year
  Sex: Female
  Weight: 72.57 kg

DRUGS (13)
  1. IBRANCE [Suspect]
     Active Substance: PALBOCICLIB
     Dosage: 100 MG, CYCLIC
     Dates: start: 20170809, end: 20170822
  2. GABAPENTIN. [Concomitant]
     Active Substance: GABAPENTIN
     Indication: FIBROMYALGIA
     Dosage: 300 MG, DAILY
     Dates: start: 2008
  3. PAROXETINE. [Concomitant]
     Active Substance: PAROXETINE
     Indication: FIBROMYALGIA
     Dosage: 10 MG, UNK
     Dates: start: 2000
  4. IBRANCE [Suspect]
     Active Substance: PALBOCICLIB
     Indication: BREAST CANCER METASTATIC
     Dosage: 125 MG, CYCLIC(20 DAYS FOR FIRST CYCLE AND 7 DAYS OF SECOND CYCLE/ ONCE DAILY, FOR THREE WEEKS AND )
     Dates: start: 20170707
  5. IBRANCE [Suspect]
     Active Substance: PALBOCICLIB
     Dosage: UNK UNK, CYCLIC (THIRD CYCLE)
     Dates: start: 20170830
  6. IBRANCE [Suspect]
     Active Substance: PALBOCICLIB
     Dosage: 100 MG, CYCLIC
     Dates: start: 20170916
  7. LETROZOLE. [Concomitant]
     Active Substance: LETROZOLE
     Indication: BREAST CANCER METASTATIC
     Dosage: 25 MG, DAILY
     Dates: start: 20170707
  8. XANAX [Concomitant]
     Active Substance: ALPRAZOLAM
     Indication: HYPOTONIA
     Dosage: 0.5 MG, ONCE A DAY
     Dates: start: 2015
  9. IBRANCE [Suspect]
     Active Substance: PALBOCICLIB
     Dosage: 100 MG, CYCLIC (DAYS 8 THRU 20 OF SECOND CYCLE AND THIRD CYCLE FOR 13 DAYS)
  10. FULVESTRANT. [Concomitant]
     Active Substance: FULVESTRANT
     Dosage: UNK
  11. IBRANCE [Suspect]
     Active Substance: PALBOCICLIB
     Dosage: 100 MG, UNK (FOR ONE DAY ONLY)
     Dates: start: 20170802
  12. IBRANCE [Suspect]
     Active Substance: PALBOCICLIB
     Dosage: 125 MG, UNK
     Dates: start: 20170803, end: 20170808
  13. LOSARTAN AND HYDROCHLOROTHIAZIDE [Concomitant]
     Active Substance: HYDROCHLOROTHIAZIDE\LOSARTAN POTASSIUM
     Indication: BLOOD PRESSURE MEASUREMENT
     Dosage: UNK, 1X/DAY [LOSARTAN: 25 MG] / [HYDROCHLOROTHIAZIDE: 12.5MG]
     Dates: start: 2000

REACTIONS (2)
  - White blood cell count decreased [Unknown]
  - Neutropenia [Unknown]

NARRATIVE: CASE EVENT DATE: 20170726
